FAERS Safety Report 9680184 (Version 2)
Quarter: 2013Q4

REPORT INFORMATION
  Report Type: Spontaneous
  Country: FR (occurrence: FR)
  Receive Date: 20131111
  Receipt Date: 20131121
  Transmission Date: 20140711
  Serious: Yes (Other)
  Sender: FDA-Public Use
  Company Number: FR-JNJFOC-20131018717

PATIENT
  Age: 29 Year
  Sex: Female

DRUGS (28)
  1. ACTIFED LP ALLERGIC RHINITIS [Suspect]
     Indication: RHINITIS ALLERGIC
     Route: 048
     Dates: start: 2009, end: 2012
  2. GROWTH HORMONE [Suspect]
     Indication: HYPOPITUITARISM
     Route: 042
     Dates: start: 1984, end: 1991
  3. SOMATROPINE [Suspect]
     Indication: HYPOPITUITARISM
     Route: 042
     Dates: start: 1991, end: 1997
  4. RHINOFLUIMUCIL [Suspect]
     Indication: PRODUCT USED FOR UNKNOWN INDICATION
     Route: 045
  5. HUMEX [Suspect]
     Indication: RHINITIS ALLERGIC
     Route: 048
     Dates: start: 2009, end: 2012
  6. VARNOLINE [Suspect]
     Indication: ORAL CONTRACEPTION
     Route: 048
     Dates: start: 1999, end: 2007
  7. DESOBEL [Suspect]
     Indication: ORAL CONTRACEPTION
     Route: 048
     Dates: start: 201106, end: 201111
  8. ESTROGEN/PROGESTERONE [Suspect]
     Indication: ORAL CONTRACEPTION
     Route: 048
     Dates: start: 201111
  9. BIPHEDRINE [Concomitant]
     Indication: PRODUCT USED FOR UNKNOWN INDICATION
     Route: 065
  10. FERVEX [Concomitant]
     Indication: PRODUCT USED FOR UNKNOWN INDICATION
     Route: 065
  11. NUROFEN [Concomitant]
     Indication: PRODUCT USED FOR UNKNOWN INDICATION
     Route: 065
  12. SEROPLEX [Concomitant]
     Indication: PRODUCT USED FOR UNKNOWN INDICATION
     Route: 065
     Dates: start: 201106
  13. ATARAX [Concomitant]
     Indication: PRODUCT USED FOR UNKNOWN INDICATION
     Route: 065
     Dates: start: 201106
  14. STRESAM [Concomitant]
     Indication: PRODUCT USED FOR UNKNOWN INDICATION
     Route: 065
     Dates: start: 201006
  15. HYDROCORTISONE [Concomitant]
     Indication: PRODUCT USED FOR UNKNOWN INDICATION
     Route: 065
     Dates: start: 2010
  16. AERIUS [Concomitant]
     Indication: PRODUCT USED FOR UNKNOWN INDICATION
     Route: 065
     Dates: start: 200906
  17. BECLOMETASONE [Concomitant]
     Indication: PRODUCT USED FOR UNKNOWN INDICATION
     Route: 065
  18. GAVISCON NOS [Concomitant]
     Indication: PRODUCT USED FOR UNKNOWN INDICATION
     Route: 065
     Dates: start: 201006
  19. NEXIUM [Concomitant]
     Indication: PRODUCT USED FOR UNKNOWN INDICATION
     Route: 065
     Dates: start: 201006
  20. DOTAREM [Concomitant]
     Indication: PRODUCT USED FOR UNKNOWN INDICATION
     Route: 065
     Dates: start: 201101
  21. LEVOTHYROX [Concomitant]
     Indication: PRODUCT USED FOR UNKNOWN INDICATION
     Route: 065
     Dates: start: 201103
  22. SPIFEN [Concomitant]
     Indication: PRODUCT USED FOR UNKNOWN INDICATION
     Route: 065
     Dates: start: 201107
  23. UVEDOSE [Concomitant]
     Indication: PRODUCT USED FOR UNKNOWN INDICATION
     Route: 065
     Dates: start: 201107
  24. LAMALINE [Concomitant]
     Indication: OFF LABEL USE
     Route: 065
     Dates: start: 201108
  25. AZITHROMYCIN [Concomitant]
     Indication: PRODUCT USED FOR UNKNOWN INDICATION
     Route: 065
     Dates: start: 201109
  26. PARACETAMOL [Concomitant]
     Indication: PRODUCT USED FOR UNKNOWN INDICATION
     Route: 065
     Dates: start: 201109
  27. ELUDRIL [Concomitant]
     Indication: PRODUCT USED FOR UNKNOWN INDICATION
     Route: 065
     Dates: start: 201109
  28. ARNICA MONTANA [Concomitant]
     Indication: PRODUCT USED FOR UNKNOWN INDICATION
     Route: 065
     Dates: start: 201111

REACTIONS (1)
  - Pulmonary arterial hypertension [Not Recovered/Not Resolved]
